FAERS Safety Report 8177393-5 (Version None)
Quarter: 2012Q1

REPORT INFORMATION
  Report Type: 
  Country: None (occurrence: None)
  Receive Date: 20120301
  Receipt Date: 20120224
  Transmission Date: 20120608
  Serious: Yes (Other)
  Sender: FDA-Public Use
  Company Number: US-BAYER-2012-019576

PATIENT
  Age: 39 Year
  Sex: Female

DRUGS (2)
  1. NSAID'S [Suspect]
     Indication: INFLUENZA LIKE ILLNESS
  2. BETASERON [Suspect]
     Indication: MULTIPLE SCLEROSIS
     Dosage: 0.25 MG, QOD
     Route: 058
     Dates: start: 20110401

REACTIONS (2)
  - ULCER [None]
  - INFLUENZA LIKE ILLNESS [None]
